FAERS Safety Report 9677635 (Version 4)
Quarter: 2013Q4

REPORT INFORMATION
  Report Type: Spontaneous
  Country: FR (occurrence: FR)
  Receive Date: 20131108
  Receipt Date: 20131127
  Transmission Date: 20140711
  Serious: Yes (Hospitalization, Other)
  Sender: FDA-Public Use
  Company Number: FR-JNJFOC-20131015630

PATIENT
  Age: 50 Year
  Sex: Female

DRUGS (1)
  1. XEPLION [Suspect]
     Indication: SCHIZOPHRENIA
     Route: 030
     Dates: start: 20130716, end: 20131014

REACTIONS (3)
  - Condition aggravated [Unknown]
  - Psychotic disorder [Not Recovered/Not Resolved]
  - Drug ineffective [Not Recovered/Not Resolved]
